FAERS Safety Report 23089384 (Version 1)
Quarter: 2023Q4

REPORT INFORMATION
  Report Type: Spontaneous
  Country: JP (occurrence: JP)
  Receive Date: 20231020
  Receipt Date: 20231020
  Transmission Date: 20240109
  Serious: Yes (Hospitalization, Other)
  Sender: FDA-Public Use
  Company Number: JP-ASTELLAS-2023US030254

PATIENT
  Age: 71 Year
  Sex: Male

DRUGS (1)
  1. CRESEMBA [Suspect]
     Active Substance: ISAVUCONAZONIUM SULFATE
     Indication: Aspergillus infection
     Route: 048
     Dates: start: 20230919, end: 20230928

REACTIONS (2)
  - Rash [Recovering/Resolving]
  - Follicular lymphoma [Unknown]

NARRATIVE: CASE EVENT DATE: 20230927
